FAERS Safety Report 10065348 (Version 1)
Quarter: 2014Q1

REPORT INFORMATION
  Report Type: Spontaneous
  Country: US (occurrence: None)
  Receive Date: 20140328
  Receipt Date: 20140328
  Transmission Date: 20141002
  Serious: No
  Sender: FDA-Public Use
  Company Number: 1000052816

PATIENT
  Sex: Female

DRUGS (1)
  1. LINZESS [Suspect]
     Indication: CONSTIPATION
     Dosage: 290 MCG, 1 IN 1 D, ORAL
     Route: 048
     Dates: start: 201401

REACTIONS (1)
  - Diarrhoea [None]
